FAERS Safety Report 9254484 (Version 1)
Quarter: 2013Q1

REPORT INFORMATION
  Report Type: Spontaneous
  Country: US (occurrence: None)
  Receive Date: 20121203
  Receipt Date: 20121203
  Transmission Date: 20140127
  Serious: Yes (Hospitalization, Other)
  Sender: FDA-Public Use
  Company Number: 2012SP011795

PATIENT
  Age: 30 Year
  Sex: Female
  Weight: 61.2 kg

DRUGS (1)
  1. NUVARING [Suspect]
     Indication: CONTRACEPTION
     Dosage: UNK , VAGINAL
     Route: 067
     Dates: start: 200901, end: 20090315

REACTIONS (19)
  - Pulmonary embolism [None]
  - Pulmonary mass [None]
  - Deep vein thrombosis [None]
  - Phlebitis [None]
  - Diarrhoea [None]
  - Cough [None]
  - Anxiety [None]
  - Chest discomfort [None]
  - Eye haemorrhage [None]
  - Chest pain [None]
  - Dyspnoea exertional [None]
  - Vulvovaginal candidiasis [None]
  - Pain in extremity [None]
  - Tricuspid valve incompetence [None]
  - Dyspepsia [None]
  - Atrial fibrillation [None]
  - Rhinitis allergic [None]
  - Local swelling [None]
  - Peripheral embolism [None]
